FAERS Safety Report 13294361 (Version 4)
Quarter: 2017Q3

REPORT INFORMATION
  Report Type: Spontaneous
  Country: KR (occurrence: KR)
  Receive Date: 20170303
  Receipt Date: 20170824
  Transmission Date: 20171127
  Serious: No
  Sender: FDA-Public Use
  Company Number: KR-009507513-1703KOR000946

PATIENT
  Age: 74 Year
  Sex: Male
  Weight: 59.5 kg

DRUGS (14)
  1. POTASSIUM CHLORIDE. [Concomitant]
     Active Substance: POTASSIUM CHLORIDE
     Indication: PROPHYLAXIS
     Dosage: 10 ML, BID
     Route: 042
     Dates: start: 20161109, end: 20161109
  2. EMEND (FOSAPREPITANT DIMEGLUMINE) [Suspect]
     Active Substance: FOSAPREPITANT DIMEGLUMINE
     Dosage: 150 MG, ONCE
     Route: 042
     Dates: start: 20161130, end: 20161130
  3. CIPROBAY [Concomitant]
     Active Substance: CIPROFLOXACIN
     Indication: INFECTION PROPHYLAXIS
     Dosage: 2 TABLET, BID
     Route: 048
     Dates: start: 20161109
  4. MACPERAN [Concomitant]
     Active Substance: METOCLOPRAMIDE HYDROCHLORIDE
     Indication: PROPHYLAXIS AGAINST GASTROINTESTINAL ULCER
     Dosage: 1 TABLET, TID
     Route: 048
     Dates: start: 20161109, end: 20161113
  5. EMEND (FOSAPREPITANT DIMEGLUMINE) [Suspect]
     Active Substance: FOSAPREPITANT DIMEGLUMINE
     Indication: PROPHYLAXIS OF NAUSEA AND VOMITING
     Dosage: 150 MG, ONCE
     Route: 042
     Dates: start: 20161109, end: 20161109
  6. DEXAMETHASONE SODIUM PHOSPHATE. [Concomitant]
     Active Substance: DEXAMETHASONE SODIUM PHOSPHATE
     Dosage: 5 MG, ONCE. CONCENTRATION: 5 MG/ML
     Route: 042
     Dates: start: 20161130, end: 20161130
  7. XELODA [Concomitant]
     Active Substance: CAPECITABINE
     Dosage: 1150 MG, QD, CYCLE 2
     Route: 048
     Dates: start: 20161130, end: 20161214
  8. DEXAMETHASONE SODIUM PHOSPHATE. [Concomitant]
     Active Substance: DEXAMETHASONE SODIUM PHOSPHATE
     Indication: PROPHYLAXIS OF NAUSEA AND VOMITING
     Dosage: 5 MG, ONCE. CONCENTRATION: 5 MG/ML
     Route: 042
     Dates: start: 20161109, end: 20161109
  9. LASIX [Concomitant]
     Active Substance: FUROSEMIDE
     Indication: PROPHYLAXIS
     Dosage: 20 MG, ONCE, CONCENTRATION: 20MG/2ML
     Route: 042
     Dates: start: 20161109, end: 20161109
  10. CISPLATIN. [Concomitant]
     Active Substance: CISPLATIN
     Indication: BILE DUCT CANCER
     Dosage: 74 MG, ONCE, CYCLE 1
     Route: 042
     Dates: start: 20161109, end: 20161109
  11. DAEWON ES [Concomitant]
     Indication: DECREASED APPETITE
     Dosage: 5 ML, QD
     Route: 048
     Dates: start: 20161031
  12. MAGNESIN (MAGNESIUM SULFATE) [Concomitant]
     Indication: ELECTROLYTE SUBSTITUTION THERAPY
     Dosage: 10 ML, BID
     Route: 042
     Dates: start: 20161109, end: 20161109
  13. ALOXI [Concomitant]
     Active Substance: PALONOSETRON HYDROCHLORIDE
     Indication: PROPHYLAXIS OF NAUSEA AND VOMITING
     Dosage: 5 ML, ONCE
     Route: 042
     Dates: start: 20161109, end: 20161109
  14. XELODA [Concomitant]
     Active Substance: CAPECITABINE
     Indication: BILE DUCT CANCER
     Dosage: 1150 MG, QD, CYCLE 1
     Route: 048
     Dates: start: 20161109, end: 20161123

REACTIONS (3)
  - Constipation [Not Recovered/Not Resolved]
  - Dyspnoea [Recovered/Resolved]
  - Nausea [Recovered/Resolved]

NARRATIVE: CASE EVENT DATE: 20161109
